FAERS Safety Report 18401549 (Version 2)
Quarter: 2020Q4

REPORT INFORMATION
  Report Type: Spontaneous
  Country: US (occurrence: US)
  Receive Date: 20201020
  Receipt Date: 20201022
  Transmission Date: 20210114
  Serious: No
  Sender: FDA-Public Use
  Company Number: US-TEVA-2020-US-1839761

PATIENT
  Age: 34 Year
  Sex: Male

DRUGS (2)
  1. ATENOLOL TEVA [Suspect]
     Active Substance: ATENOLOL
     Indication: CARDIAC DISORDER
     Route: 065
  2. ATENOLOL TEVA [Suspect]
     Active Substance: ATENOLOL
     Indication: HEART RATE IRREGULAR
     Route: 065

REACTIONS (3)
  - Therapeutic product effect variable [Unknown]
  - Cardiovascular function test abnormal [Unknown]
  - Heart rate increased [Unknown]
